FAERS Safety Report 25502750 (Version 1)
Quarter: 2025Q3

REPORT INFORMATION
  Report Type: Spontaneous
  Country: US (occurrence: US)
  Receive Date: 20250702
  Receipt Date: 20250702
  Transmission Date: 20251020
  Serious: No
  Sender: KYOWA
  Company Number: US-KYOWAKIRIN-2025KK012412

PATIENT

DRUGS (5)
  1. NOURIANZ [Suspect]
     Active Substance: ISTRADEFYLLINE
     Indication: Parkinson^s disease
     Dosage: 40 MG, QD
     Route: 048
     Dates: start: 20250524
  2. GOCOVRI [Concomitant]
     Active Substance: AMANTADINE
     Indication: Product used for unknown indication
     Route: 065
  3. INBRIJA [Concomitant]
     Active Substance: LEVODOPA
     Indication: Product used for unknown indication
  4. NEUPRO [Concomitant]
     Active Substance: ROTIGOTINE
     Indication: Product used for unknown indication
     Dosage: 8 MG, QD (DIS 8MG/24HR)
     Route: 065
  5. RYTARY [Concomitant]
     Active Substance: CARBIDOPA\LEVODOPA
     Indication: Product used for unknown indication
     Route: 065

REACTIONS (1)
  - Dizziness [Not Recovered/Not Resolved]
